FAERS Safety Report 7943880-5 (Version None)
Quarter: 2011Q4

REPORT INFORMATION
  Report Type: 
  Country: None (occurrence: None)
  Receive Date: 20111128
  Receipt Date: 20111124
  Transmission Date: 20120403
  Serious: Yes (Life-Threatening)
  Sender: FDA-Public Use
  Company Number: JP-ABBOTT-11P-087-0877295-00

PATIENT
  Sex: Female
  Weight: 55.3 kg

DRUGS (5)
  1. SEVOFLURANE [Suspect]
     Indication: ANAESTHESIA
     Route: 055
     Dates: start: 20110405, end: 20110405
  2. SEVOFLURANE [Suspect]
     Route: 055
     Dates: start: 20110405, end: 20110405
  3. ROCURONIUM BROMIDE [Concomitant]
     Indication: PRODUCT USED FOR UNKNOWN INDICATION
     Dates: start: 20110405, end: 20110405
  4. PROPOFOL [Concomitant]
     Indication: INDUCTION OF ANAESTHESIA
     Dosage: DAILY DOSE: 200MG
     Route: 042
     Dates: start: 20110405, end: 20110405
  5. EPHEDRINE HYDROCHLORIDE [Suspect]
     Indication: PRODUCT USED FOR UNKNOWN INDICATION
     Dates: start: 20110405

REACTIONS (5)
  - BLOOD PRESSURE DECREASED [None]
  - HEART RATE DECREASED [None]
  - EXTRASYSTOLES [None]
  - ARRHYTHMIA [None]
  - TORSADE DE POINTES [None]
